FAERS Safety Report 8553799-7 (Version None)
Quarter: 2012Q3

REPORT INFORMATION
  Report Type: 
  Country: None (occurrence: None)
  Receive Date: 20120719
  Receipt Date: 20120607
  Transmission Date: 20120928
  Serious: Yes (Other)
  Sender: FDA-Public Use
  Company Number: 2012-3247

PATIENT
  Sex: Male

DRUGS (1)
  1. SOMATULINE DEPOT [Suspect]
     Indication: NEUROENDOCRINE TUMOUR

REACTIONS (3)
  - ATRIOVENTRICULAR BLOCK [None]
  - INJECTION SITE MASS [None]
  - RENAL FAILURE [None]
